FAERS Safety Report 8955681 (Version 3)
Quarter: 2013Q1

REPORT INFORMATION
  Report Type: Report from Study
  Country: IL (occurrence: IL)
  Receive Date: 20121207
  Receipt Date: 20130103
  Transmission Date: 20140127
  Serious: Yes (Hospitalization, Other)
  Sender: FDA-Public Use
  Company Number: IL-ROCHE-1142835

PATIENT
  Age: 66 Year
  Sex: Female

DRUGS (10)
  1. PERTUZUMAB [Suspect]
     Indication: BREAST CANCER
     Route: 065
     Dates: start: 20121003
  2. TRASTUZUMAB [Suspect]
     Indication: BREAST CANCER
     Route: 065
     Dates: start: 20121003
  3. PACLITAXEL [Suspect]
     Indication: BREAST CANCER
     Route: 065
     Dates: start: 20121003, end: 20121003
  4. DOCETAXEL [Suspect]
     Indication: BREAST CANCER
     Dosage: DATE OF LAST DOSE PRIOR TO SAE 16/OCT/2012
     Route: 065
     Dates: start: 20121016
  5. DOCETAXEL [Suspect]
     Route: 065
     Dates: start: 20121023
  6. DISOTHIAZIDE [Concomitant]
     Route: 065
     Dates: start: 2009
  7. CARDILOC [Concomitant]
     Route: 065
     Dates: start: 2009
  8. VASODIP [Concomitant]
     Route: 065
     Dates: start: 2009
  9. ELTROXIN [Concomitant]
     Route: 065
  10. AMBIEN [Concomitant]
     Route: 065
     Dates: start: 2012

REACTIONS (2)
  - Drug hypersensitivity [Recovered/Resolved]
  - Pyrexia [Recovered/Resolved]
